FAERS Safety Report 18056985 (Version 1)
Quarter: 2020Q3

REPORT INFORMATION
  Report Type: Other
  Country: US (occurrence: US)
  Receive Date: 20200723
  Receipt Date: 20200723
  Transmission Date: 20201103
  Serious: Yes (Other)
  Sender: FDA-Public Use
  Company Number: US-ROCHE-2609782

PATIENT
  Age: 54 Year
  Sex: Female

DRUGS (22)
  1. ZELBORAF [Suspect]
     Active Substance: VEMURAFENIB
     Indication: ALOPECIA SCARRING
     Route: 048
  2. ZELBORAF [Suspect]
     Active Substance: VEMURAFENIB
     Indication: UVEITIS
     Dosage: ONGOING :YES
     Route: 048
     Dates: start: 201704
  3. ZELBORAF [Suspect]
     Active Substance: VEMURAFENIB
     Indication: ERDHEIM-CHESTER DISEASE
  4. DICYCLOMINE [Concomitant]
     Active Substance: DICYCLOMINE HYDROCHLORIDE
     Indication: IRRITABLE BOWEL SYNDROME
     Dosage: ONGOING: YES
  5. DENOSUMAB [Concomitant]
     Active Substance: DENOSUMAB
  6. ZELBORAF [Suspect]
     Active Substance: VEMURAFENIB
     Indication: HISTIOCYTOSIS
     Dosage: TAKE 2 TABLET(S) BY MOUTH EVERY 12 HOURS
     Route: 048
  7. ESCITALOPRAM [Concomitant]
     Active Substance: ESCITALOPRAM OXALATE
     Dosage: ONGOING :YES
  8. PREDNISOLONE ACETATE. [Concomitant]
     Active Substance: PREDNISOLONE ACETATE
     Indication: UVEITIS
     Dosage: ONGOING NO
  9. PREDNISONE. [Concomitant]
     Active Substance: PREDNISONE
     Indication: INFLAMMATION
     Dosage: ONGOING YES
  10. LOSARTAN. [Concomitant]
     Active Substance: LOSARTAN
     Dosage: ONGOING :YES
     Dates: start: 202007
  11. PREDNISOLONE ACETATE. [Concomitant]
     Active Substance: PREDNISOLONE ACETATE
  12. KETOROLAC [Concomitant]
     Active Substance: KETOROLAC TROMETHAMINE
     Indication: UVEITIS
     Dosage: ONGOING NO
  13. LOSARTAN. [Concomitant]
     Active Substance: LOSARTAN
     Indication: HYPERTENSION
     Dosage: ONGOING: NO
  14. ZELBORAF [Suspect]
     Active Substance: VEMURAFENIB
     Indication: ALOPECIA AREATA
  15. ZELBORAF [Suspect]
     Active Substance: VEMURAFENIB
     Indication: SUNBURN
  16. LEVOTHYROXINE. [Concomitant]
     Active Substance: LEVOTHYROXINE
     Dosage: ONGOING YES
     Dates: start: 2017
  17. CALCIUM [Concomitant]
     Active Substance: CALCIUM
     Dosage: ONGOING YES
  18. VITAMIN D3 [Concomitant]
     Active Substance: CHOLECALCIFEROL
     Dosage: ONGOING YES
  19. RABEPRAZOLE [Concomitant]
     Active Substance: RABEPRAZOLE
     Indication: GASTROOESOPHAGEAL REFLUX DISEASE
  20. KETOROLAC [Concomitant]
     Active Substance: KETOROLAC TROMETHAMINE
     Dosage: ONGOING YES
  21. OMEPRAZOLE. [Concomitant]
     Active Substance: OMEPRAZOLE
     Indication: GASTROOESOPHAGEAL REFLUX DISEASE
  22. ACETAMINOPHEN. [Concomitant]
     Active Substance: ACETAMINOPHEN

REACTIONS (15)
  - Nasopharyngitis [Unknown]
  - Headache [Unknown]
  - Weight decreased [Not Recovered/Not Resolved]
  - Throat irritation [Unknown]
  - Ear discomfort [Unknown]
  - Vision blurred [Recovered/Resolved]
  - Hypertension [Unknown]
  - Sunburn [Unknown]
  - Hypotension [Not Recovered/Not Resolved]
  - Anaemia [Not Recovered/Not Resolved]
  - Alopecia [Unknown]
  - Sleep disorder [Not Recovered/Not Resolved]
  - Fatigue [Not Recovered/Not Resolved]
  - Uveitis [Unknown]
  - Sinusitis [Unknown]

NARRATIVE: CASE EVENT DATE: 2018
